FAERS Safety Report 8561246-4 (Version None)
Quarter: 2012Q3

REPORT INFORMATION
  Report Type: 
  Country: None (occurrence: None)
  Receive Date: 20120802
  Receipt Date: 20120727
  Transmission Date: 20120928
  Serious: Yes (Hospitalization)
  Sender: FDA-Public Use
  Company Number: US-ALEXION PHARMACEUTICALS INC.-A201201421

PATIENT
  Sex: Female

DRUGS (1)
  1. SOLIRIS [Suspect]
     Dosage: UNK
     Route: 042

REACTIONS (10)
  - OEDEMA PERIPHERAL [None]
  - BLEPHAROSPASM [None]
  - MIGRAINE [None]
  - HYPOAESTHESIA [None]
  - VISION BLURRED [None]
  - PARAESTHESIA [None]
  - TRISMUS [None]
  - VOMITING [None]
  - LOSS OF CONSCIOUSNESS [None]
  - NAUSEA [None]
